FAERS Safety Report 5881139-0 (Version None)
Quarter: 2008Q3

REPORT INFORMATION
  Report Type: 
  Country: None (occurrence: None)
  Receive Date: 20080912
  Receipt Date: 20080610
  Transmission Date: 20090109
  Serious: No
  Sender: FDA-Public Use
  Company Number: US-ABBOTT-08P-163-0458705-00

PATIENT
  Sex: Male

DRUGS (1)
  1. HUMIRA [Suspect]
     Indication: DRUG USE FOR UNKNOWN INDICATION
     Dates: start: 20080201

REACTIONS (6)
  - INJECTION SITE PAIN [None]
  - INSOMNIA [None]
  - MALAISE [None]
  - NERVOUSNESS [None]
  - RESTLESSNESS [None]
  - WEIGHT GAIN POOR [None]
